FAERS Safety Report 9367174 (Version 1)
Quarter: 2013Q2

REPORT INFORMATION
  Report Type: Spontaneous
  Country: US (occurrence: US)
  Receive Date: 20130625
  Receipt Date: 20130625
  Transmission Date: 20140414
  Serious: No
  Sender: FDA-Public Use
  Company Number: US-ASTELLAS-2012US005697

PATIENT
  Sex: Female

DRUGS (2)
  1. VESICARE [Suspect]
     Indication: PRODUCT USED FOR UNKNOWN INDICATION
     Dosage: 5 MG, UID/QD
     Route: 048
     Dates: start: 201203, end: 201206
  2. VESICARE [Suspect]
     Dosage: 2.5 MG QD
     Route: 048
     Dates: start: 201206

REACTIONS (2)
  - Wrong technique in drug usage process [Unknown]
  - Nausea [Unknown]
